FAERS Safety Report 9496777 (Version 1)
Quarter: 2013Q3

REPORT INFORMATION
  Report Type: Spontaneous
  Country: IT (occurrence: None)
  Receive Date: 20130830
  Receipt Date: 20130830
  Transmission Date: 20140515
  Serious: Yes (Hospitalization)
  Sender: FDA-Public Use
  Company Number: 2013AP007514

PATIENT
  Age: 42 Year
  Sex: Female

DRUGS (1)
  1. LEVOFLOXACIN [Suspect]
     Indication: BRONCHITIS
     Route: 048
     Dates: start: 20130711, end: 20130713

REACTIONS (4)
  - Loss of consciousness [None]
  - Disturbance in attention [None]
  - Asthenia [None]
  - Headache [None]
